FAERS Safety Report 5169119-4 (Version None)
Quarter: 2006Q4

REPORT INFORMATION
  Report Type: 
  Country: None (occurrence: None)
  Receive Date: 20061211
  Receipt Date: 20061115
  Transmission Date: 20070319
  Serious: Yes (Death)
  Sender: FDA-Public Use
  Company Number: VE-MERCK-0611VEN00001

PATIENT
  Age: 5 Year
  Sex: Female

DRUGS (4)
  1. SINGULAIR [Suspect]
     Route: 065
  2. CARBOCYSTEINE [Concomitant]
     Route: 065
  3. FOLIC ACID AND IRON POLYMALTOSE [Concomitant]
     Route: 065
  4. BUDESONIDE [Concomitant]
     Route: 065

REACTIONS (1)
  - DEATH [None]
